FAERS Safety Report 12076260 (Version 1)
Quarter: 2016Q1

REPORT INFORMATION
  Report Type: Spontaneous
  Country: CL (occurrence: CL)
  Receive Date: 20160215
  Receipt Date: 20160215
  Transmission Date: 20160526
  Serious: Yes (Other)
  Sender: FDA-Public Use
  Company Number: CL-ROCHE-1706591

PATIENT
  Sex: Female

DRUGS (6)
  1. METOCLOPRAMIDE. [Concomitant]
     Active Substance: METOCLOPRAMIDE
     Indication: NAUSEA
  2. METOCLOPRAMIDE. [Concomitant]
     Active Substance: METOCLOPRAMIDE
     Indication: VOMITING
  3. PREDNISONE. [Concomitant]
     Active Substance: PREDNISONE
  4. XELODA [Suspect]
     Active Substance: CAPECITABINE
     Indication: GASTRIC CANCER
     Dosage: 14 DAYS PER CYCLE
     Route: 048
     Dates: start: 20160201
  5. TRAMADOL. [Concomitant]
     Active Substance: TRAMADOL
     Indication: PAIN
  6. LACTULOSE. [Concomitant]
     Active Substance: LACTULOSE

REACTIONS (12)
  - Dizziness [Not Recovered/Not Resolved]
  - Medication error [Unknown]
  - Haematochezia [Unknown]
  - Blood urine present [Not Recovered/Not Resolved]
  - Swelling [Recovered/Resolved]
  - Hallucination [Recovered/Resolved]
  - Vomiting [Not Recovered/Not Resolved]
  - Anal haemorrhage [Not Recovered/Not Resolved]
  - Nausea [Recovered/Resolved]
  - Rash [Recovered/Resolved]
  - Constipation [Not Recovered/Not Resolved]
  - Asthenia [Not Recovered/Not Resolved]

NARRATIVE: CASE EVENT DATE: 20160201
